FAERS Safety Report 7817009-8 (Version None)
Quarter: 2011Q4

REPORT INFORMATION
  Report Type: 
  Country: None (occurrence: None)
  Receive Date: 20111017
  Receipt Date: 20111004
  Transmission Date: 20120403
  Serious: Yes (Other)
  Sender: FDA-Public Use
  Company Number: NL-AMGEN-NLDSP2011044174

PATIENT
  Age: 37 Year
  Sex: Female

DRUGS (8)
  1. SIROXYL [Concomitant]
     Dosage: UNK
  2. ENBREL [Suspect]
     Indication: PSORIATIC ARTHROPATHY
     Dosage: 50 MG, WEEKLY
     Dates: start: 20110316
  3. NEXIUM [Concomitant]
     Dosage: UNK
  4. DIAZEPAM [Concomitant]
     Dosage: UNK
  5. SIMVASTATIN [Concomitant]
     Dosage: UNK
  6. ARCOXIA [Concomitant]
     Dosage: UNK
  7. ARAVA [Concomitant]
     Dosage: UNK
  8. METFORMIN HYDROCHLORIDE [Concomitant]
     Dosage: UNK

REACTIONS (2)
  - PSORIATIC ARTHROPATHY [None]
  - DRUG EFFECT DECREASED [None]
